FAERS Safety Report 8232988-5 (Version None)
Quarter: 2012Q1

REPORT INFORMATION
  Report Type: 
  Country: None (occurrence: None)
  Receive Date: 20120326
  Receipt Date: 20120315
  Transmission Date: 20120608
  Serious: Yes (Hospitalization)
  Sender: FDA-Public Use
  Company Number: US-BIOGENIDEC-2010BI017837

PATIENT
  Age: 50 Year
  Sex: Male
  Weight: 96 kg

DRUGS (9)
  1. NEURONTIN [Concomitant]
     Indication: MULTIPLE SCLEROSIS
  2. HYDROCHLOROTHIAZIDE [Concomitant]
     Indication: HYPERTENSION
  3. EXFORGE [Concomitant]
     Indication: HYPERTENSION
  4. LEXAPRO [Concomitant]
     Indication: MULTIPLE SCLEROSIS
  5. SIMVASTATIN [Concomitant]
     Indication: BLOOD CHOLESTEROL INCREASED
  6. PRAMIPEXOLE DIHYDROCHLORIDE [Concomitant]
     Indication: RESTLESS LEGS SYNDROME
  7. TYSABRI [Suspect]
     Indication: MULTIPLE SCLEROSIS
     Route: 042
     Dates: start: 20100430, end: 20100604
  8. TRICOR [Concomitant]
     Indication: BLOOD CHOLESTEROL INCREASED
  9. BACLOFEN [Concomitant]
     Indication: MUSCLE SPASTICITY

REACTIONS (11)
  - CHANGE OF BOWEL HABIT [None]
  - HYPERTENSION [None]
  - CROHN'S DISEASE [None]
  - PYREXIA [None]
  - GALLBLADDER OPERATION [None]
  - APPENDICECTOMY [None]
  - ABDOMINAL PAIN [None]
  - WEIGHT DECREASED [None]
  - GASTROINTESTINAL DISORDER [None]
  - COLONIC POLYP [None]
  - HERNIA [None]
